FAERS Safety Report 9866012 (Version 2)
Quarter: 2014Q1

REPORT INFORMATION
  Report Type: Spontaneous
  Country: US (occurrence: US)
  Receive Date: 20140203
  Receipt Date: 20140203
  Transmission Date: 20141002
  Serious: No
  Sender: FDA-Public Use
  Company Number: US-ALLERGAN-1314300US

PATIENT
  Age: 73 Year
  Sex: Female

DRUGS (4)
  1. RESTASIS [Suspect]
     Indication: EYE DISORDER
     Dosage: 2 GTT, BID
     Route: 047
     Dates: start: 201208
  2. HTN MEDICATION NOS [Concomitant]
     Indication: HYPERTENSION
     Dosage: UNK
  3. EVISTA [Concomitant]
     Indication: OSTEOPOROSIS
     Dosage: UNK
  4. GENTEAL OINTMENT [Concomitant]
     Indication: EYE DISORDER
     Dosage: UNK, QHS
     Route: 047

REACTIONS (1)
  - Therapeutic response decreased [Unknown]
